FAERS Safety Report 5758689-0 (Version None)
Quarter: 2008Q2

REPORT INFORMATION
  Report Type: 
  Country: None (occurrence: None)
  Receive Date: 20080603
  Receipt Date: 20080603
  Transmission Date: 20081010
  Serious: Yes (Hospitalization)
  Sender: FDA-Public Use
  Company Number: None

PATIENT
  Sex: Male
  Weight: 78.5 kg

DRUGS (2)
  1. GEMCITABINE [Suspect]
     Indication: HEAD AND NECK CANCER
     Dosage: 3000 MG/M2, Q 2 WKS, IV
     Route: 042
     Dates: start: 20080515
  2. DOCETAXEL [Suspect]
     Indication: HEAD AND NECK CANCER
     Dosage: 60 MG/M2, Q 2 WKS, IV
     Route: 042
     Dates: start: 20080515

REACTIONS (2)
  - INCREASED BRONCHIAL SECRETION [None]
  - SCAB [None]
